FAERS Safety Report 7649759-0 (Version None)
Quarter: 2011Q3

REPORT INFORMATION
  Report Type: 
  Country: None (occurrence: None)
  Receive Date: 20110802
  Receipt Date: 20110720
  Transmission Date: 20111222
  Serious: No
  Sender: FDA-Public Use
  Company Number: CA-ELI_LILLY_AND_COMPANY-CA201107005308

PATIENT
  Sex: Male

DRUGS (17)
  1. ZYPREXA [Suspect]
     Dosage: 1.25 MG, QD
  2. INDERAL [Concomitant]
  3. NOVASEN [Concomitant]
  4. ZYPREXA [Suspect]
     Dosage: 2.5 MG, QD
  5. SEROQUEL [Concomitant]
  6. MONOCOR [Concomitant]
  7. SYNTHROID [Concomitant]
  8. ACCUPRIL [Concomitant]
  9. VIOXX [Concomitant]
  10. PLAVIX [Concomitant]
  11. BEXTRA [Concomitant]
  12. ZYPREXA [Suspect]
     Dosage: 10 MG, QD
  13. PRILOSEC [Concomitant]
  14. CLONAZEPAM [Concomitant]
  15. ATIVAN [Concomitant]
  16. ALTACE [Concomitant]
  17. CYCLOBENZAPRINE [Concomitant]

REACTIONS (9)
  - GOUT [None]
  - SKIN DISCOLOURATION [None]
  - HYPERTENSION [None]
  - PARAESTHESIA [None]
  - TYPE 2 DIABETES MELLITUS [None]
  - HYPERLIPIDAEMIA [None]
  - RECTAL HAEMORRHAGE [None]
  - HYPERGLYCAEMIA [None]
  - WEIGHT INCREASED [None]
